FAERS Safety Report 15851266 (Version 1)
Quarter: 2019Q1

REPORT INFORMATION
  Report Type: Spontaneous
  Country: FR (occurrence: FR)
  Receive Date: 20190122
  Receipt Date: 20190122
  Transmission Date: 20190417
  Serious: Yes (Disabling, Other)
  Sender: FDA-Public Use
  Company Number: FR-BRISTOL-MYERS SQUIBB COMPANY-BMS-2019-003749

PATIENT
  Age: 68 Year
  Sex: Female
  Weight: 62 kg

DRUGS (10)
  1. HYDROCORTISONE. [Concomitant]
     Active Substance: HYDROCORTISONE
     Indication: ADRENAL INSUFFICIENCY
     Dosage: 40 MG, DRUG INTERVAL DOSAGE UNTI NUMBER ^1 DAY^
     Route: 048
  2. OPDIVO [Suspect]
     Active Substance: NIVOLUMAB
     Indication: SQUAMOUS CELL CARCINOMA OF LUNG
     Dosage: 240 MG, DRUG INTERVAL DOSAGE UNIT NUMBER ^ 2 WEEK^
     Route: 041
     Dates: start: 20180507, end: 20181105
  3. ANORO ELLIPTA [Concomitant]
     Active Substance: UMECLIDINIUM BROMIDE\VILANTEROL TRIFENATATE
     Indication: CHRONIC OBSTRUCTIVE PULMONARY DISEASE
     Dosage: 1 DF= 1 ^T^, DRUG INTERVAL DOSAGE UNTI NUMBER ^1 DAY^
     Route: 055
  4. NERISONE C [Concomitant]
     Indication: PRODUCT USED FOR UNKNOWN INDICATION
     Route: 003
  5. OXYCODONE [Concomitant]
     Active Substance: OXYCODONE
     Indication: PAIN
     Dosage: 20 MG, UNK
     Route: 048
  6. OXYCONTIN [Concomitant]
     Active Substance: OXYCODONE HYDROCHLORIDE
     Indication: PAIN
     Dosage: 140 MG, DRUG INTERVAL DOSAGE UNTI NUMBER ^1 DAY^
     Route: 048
  7. NEBIVOLOL. [Suspect]
     Active Substance: NEBIVOLOL
     Indication: HYPERTENSION
     Dosage: 2.5 MG, DRUG INTERVAL DAOSAGE UNIT NUMBER ^1 DAY^
     Route: 048
     Dates: end: 20181211
  8. GABAPENTINE [Concomitant]
     Active Substance: GABAPENTIN
     Indication: PAIN
     Dosage: 1600 MG, DRUG INTERVAL DOSAGE UNIT NUMBER ^1 DAY^
     Route: 048
  9. PARACETAMOL [Concomitant]
     Active Substance: ACETAMINOPHEN
     Indication: PAIN
     Dosage: 1 G, UNK
     Route: 048
  10. SYMBICORT [Concomitant]
     Active Substance: BUDESONIDE\FORMOTEROL FUMARATE DIHYDRATE
     Indication: CHRONIC OBSTRUCTIVE PULMONARY DISEASE
     Dosage: 2 DF= 2 ^T^, DRUG INTERVAL DOSAGE UNIT NUMBER ^1 DAY^
     Route: 055

REACTIONS (2)
  - Dyspnoea [Recovering/Resolving]
  - Pulmonary arterial hypertension [Recovering/Resolving]

NARRATIVE: CASE EVENT DATE: 201810
